FAERS Safety Report 21346717 (Version 1)
Quarter: 2022Q3

REPORT INFORMATION
  Report Type: Spontaneous
  Country: US (occurrence: US)
  Receive Date: 20220918
  Receipt Date: 20220918
  Transmission Date: 20221026
  Serious: Yes (Other)
  Sender: FDA-Public Use
  Company Number: US-SA-SAC20220914000287

PATIENT
  Age: 53 Year
  Sex: Male

DRUGS (1)
  1. ZANTAC [Suspect]
     Active Substance: RANITIDINE HYDROCHLORIDE
     Indication: Dyspepsia
     Dosage: 300 MG, QW
     Dates: start: 200401, end: 201904

REACTIONS (1)
  - Colorectal cancer stage II [Unknown]

NARRATIVE: CASE EVENT DATE: 20200401
